FAERS Safety Report 4817962-0 (Version None)
Quarter: 2005Q4

REPORT INFORMATION
  Report Type: 
  Country: None (occurrence: None)
  Receive Date: 20051101
  Receipt Date: 20051101
  Transmission Date: 20060501
  Serious: Yes (Hospitalization)
  Sender: FDA-Public Use
  Company Number: None

PATIENT
  Age: 87 Year
  Sex: Male
  Weight: 89.3586 kg

DRUGS (17)
  1. LORTAB [Suspect]
     Indication: PAIN
     Dosage: PATIENT TAKING BOTH
  2. LORCET-HD [Suspect]
  3. CYCLOBENZAPINE [Suspect]
     Indication: MUSCLE SPASMS
     Dosage: 10 MG  Q 8H PRN
  4. ARTIFICIAL TEARS POLYVINYL ALCOHOL [Concomitant]
  5. CAPSACIN 0.025% CREAM [Concomitant]
  6. COLCHICINE [Concomitant]
  7. CYCLOBENZAPRINE HCL [Concomitant]
  8. FAMOTIDINE [Concomitant]
  9. FUROSEMIDE [Concomitant]
  10. HYDROCODONE [Concomitant]
  11. IBUPROFEN [Concomitant]
  12. KETOROLAC TROMETHAMINE [Concomitant]
  13. LEVOTHYROXINE SODIUM [Concomitant]
  14. METOPROLOL TARTRATE [Concomitant]
  15. POTASSIUM CHLORIDE [Concomitant]
  16. TRAVOPROST [Concomitant]
  17. WARFARIN [Concomitant]

REACTIONS (2)
  - CONFUSIONAL STATE [None]
  - HALLUCINATION [None]
